FAERS Safety Report 20584538 (Version 1)
Quarter: 2022Q1

REPORT INFORMATION
  Report Type: Spontaneous
  Country: DE (occurrence: DE)
  Receive Date: 20220311
  Receipt Date: 20220311
  Transmission Date: 20220423
  Serious: Yes (Disabling, Other)
  Sender: FDA-Public Use
  Company Number: DE-ASTPRD-AER-2022-000486

PATIENT
  Age: 86 Year
  Sex: Male

DRUGS (1)
  1. XTANDI [Suspect]
     Active Substance: ENZALUTAMIDE
     Indication: Prostate cancer
     Dosage: 160 MG (4X40 MG), ONCE DAILY
     Route: 065
     Dates: start: 20210728

REACTIONS (5)
  - Demyelination [Unknown]
  - Paralysis [Not Recovered/Not Resolved]
  - Hypokinesia [Unknown]
  - Gait disturbance [Unknown]
  - Muscular weakness [Not Recovered/Not Resolved]

NARRATIVE: CASE EVENT DATE: 20211210
